FAERS Safety Report 10178749 (Version 2)
Quarter: 2014Q2

REPORT INFORMATION
  Report Type: Spontaneous
  Country: US (occurrence: US)
  Receive Date: 20140519
  Receipt Date: 20140519
  Transmission Date: 20141212
  Serious: Yes (Other)
  Sender: FDA-Public Use
  Company Number: US-UCBSA-114397

PATIENT
  Sex: Male

DRUGS (1)
  1. NEUPRO [Suspect]
     Indication: PARKINSON^S DISEASE
     Route: 062

REACTIONS (2)
  - Anxiety [Unknown]
  - Agitation [Unknown]
